FAERS Safety Report 5277598-7 (Version None)
Quarter: 2007Q1

REPORT INFORMATION
  Report Type: 
  Country: None (occurrence: None)
  Receive Date: 20070327
  Receipt Date: 20070312
  Transmission Date: 20070707
  Serious: Yes (Other)
  Sender: FDA-Public Use
  Company Number: US-SHR-US-2007-005411

PATIENT
  Age: 36 Year
  Sex: Female

DRUGS (6)
  1. BETASERON [Suspect]
     Indication: RELAPSING-REMITTING MULTIPLE SCLEROSIS
     Dosage: 8 MIU, EVERY 2D
     Dates: start: 20061128, end: 20070127
  2. MUSCLE RELAXANTS [Concomitant]
  3. ASPIRIN [Concomitant]
     Dosage: 81 MG, 2X/DAY
  4. PLAVIX [Concomitant]
  5. CLONOPIN [Concomitant]
  6. TYLENOL [Concomitant]
     Dosage: 500 MG, UNK

REACTIONS (2)
  - CHRONIC HEPATITIS [None]
  - FATIGUE [None]
